FAERS Safety Report 23040627 (Version 1)
Quarter: 2023Q4

REPORT INFORMATION
  Report Type: Spontaneous
  Country: CN (occurrence: CN)
  Receive Date: 20231006
  Receipt Date: 20231006
  Transmission Date: 20240110
  Serious: Yes (Hospitalization, Other)
  Sender: FDA-Public Use
  Company Number: CN-ABBOTT-2023A-1370598

PATIENT
  Age: 32 Year
  Sex: Male
  Weight: 95 kg

DRUGS (2)
  1. FENOFIBRATE [Suspect]
     Active Substance: FENOFIBRATE
     Indication: Diabetic ketosis
     Route: 048
     Dates: start: 20230817, end: 20230820
  2. PIOGLITAZONE HYDROCHLORIDE AND METFORMIN HYDROCHLORIDE [Concomitant]
     Active Substance: METFORMIN HYDROCHLORIDE\PIOGLITAZONE HYDROCHLORIDE
     Indication: Diabetic ketosis
     Dosage: UNIT DOSE: 1 TABLET AND DAILY DOSE: 2 TABLET ( FORM STRENGTH:15 MG/500 MG)
     Route: 048
     Dates: start: 20230818, end: 20230822

REACTIONS (2)
  - Blood creatine phosphokinase increased [Recovering/Resolving]
  - Myoglobinaemia [Recovering/Resolving]

NARRATIVE: CASE EVENT DATE: 20230821
